FAERS Safety Report 7586496-5 (Version None)
Quarter: 2011Q3

REPORT INFORMATION
  Report Type: 
  Country: None (occurrence: None)
  Receive Date: 20110701
  Receipt Date: 20110616
  Transmission Date: 20111222
  Serious: Yes (Other)
  Sender: FDA-Public Use
  Company Number: GB-WATSON-2011-08428

PATIENT
  Age: 50 Year
  Sex: Male

DRUGS (4)
  1. ROSIGLITAZONE [Suspect]
     Indication: PRODUCT USED FOR UNKNOWN INDICATION
     Dosage: 4 MG, UNKNOWN
     Route: 065
  2. SIMVASTATIN [Suspect]
     Indication: PRODUCT USED FOR UNKNOWN INDICATION
     Dosage: 80 MG, UNKNOWN
     Route: 065
  3. ATORVASTATIN [Suspect]
     Indication: LIPIDS ABNORMAL
     Dosage: 40 MG, UNKNOWN
     Route: 065
  4. FENOFIBRATE [Suspect]
     Indication: LIPIDS ABNORMAL
     Dosage: 267 MG, UNKNOWN
     Route: 065

REACTIONS (2)
  - DRUG INTERACTION [None]
  - HIGH DENSITY LIPOPROTEIN DECREASED [None]
